FAERS Safety Report 10404813 (Version 3)
Quarter: 2014Q3

REPORT INFORMATION
  Report Type: Report from Study
  Country: CL (occurrence: CL)
  Receive Date: 20140825
  Receipt Date: 20140930
  Transmission Date: 20150326
  Serious: Yes (Death, Hospitalization, Other)
  Sender: FDA-Public Use
  Company Number: CL-ROCHE-1453237

PATIENT
  Age: 59 Year
  Sex: Female
  Weight: 71 kg

DRUGS (2)
  1. XELODA [Suspect]
     Active Substance: CAPECITABINE
     Route: 048
  2. XELODA [Suspect]
     Active Substance: CAPECITABINE
     Indication: COLORECTAL CANCER
     Dosage: 14 DAY CYCLE.
     Route: 048
     Dates: start: 20140729, end: 20140909

REACTIONS (6)
  - Blood pressure decreased [Recovered/Resolved]
  - Renal failure [Unknown]
  - Ill-defined disorder [Recovered/Resolved]
  - Circulatory collapse [Fatal]
  - Anxiety [Not Recovered/Not Resolved]
  - Dehydration [Unknown]

NARRATIVE: CASE EVENT DATE: 20140818
